FAERS Safety Report 25035127 (Version 2)
Quarter: 2025Q1

REPORT INFORMATION
  Report Type: Report from Study
  Country: US (occurrence: US)
  Receive Date: 20250304
  Receipt Date: 20250313
  Transmission Date: 20250408
  Serious: Yes (Other)
  Sender: ALEXION PHARMACEUTICALS
  Company Number: US-AstraZeneca-CH-00816028A

PATIENT

DRUGS (1)
  1. ULTOMIRIS [Suspect]
     Active Substance: RAVULIZUMAB-CWVZ
     Indication: Myasthenia gravis
     Route: 065

REACTIONS (11)
  - Myasthenia gravis crisis [Unknown]
  - Meningitis noninfective [Unknown]
  - Back pain [Unknown]
  - Fatigue [Unknown]
  - Pyrexia [Unknown]
  - Headache [Unknown]
  - Infusion related reaction [Unknown]
  - Nausea [Unknown]
  - Vomiting [Unknown]
  - Device issue [Unknown]
  - Incorrect drug administration rate [Unknown]
